FAERS Safety Report 15835422 (Version 1)
Quarter: 2019Q1

REPORT INFORMATION
  Report Type: Spontaneous
  Country: GB (occurrence: GB)
  Receive Date: 20190117
  Receipt Date: 20190117
  Transmission Date: 20190417
  Serious: Yes (Hospitalization, Other)
  Sender: FDA-Public Use
  Company Number: GB-TEVA-2019-GB-998551

PATIENT
  Age: 58 Year
  Sex: Female

DRUGS (8)
  1. CEFALEXIN [Concomitant]
     Active Substance: CEPHALEXIN
     Dosage: 250 MILLIGRAM DAILY; NIGHT.
  2. BENEPALI [Interacting]
     Active Substance: ETANERCEPT
     Indication: RHEUMATOID ARTHRITIS
     Route: 003
     Dates: start: 200411, end: 20180529
  3. RELVAR ELLIPTA [Concomitant]
     Active Substance: FLUTICASONE FUROATE\VILANTEROL TRIFENATATE
     Dosage: 1 DOSAGE FORMS DAILY; PUFF. 92/22.
  4. PREDNISOLONE ACETATE. [Suspect]
     Active Substance: PREDNISOLONE ACETATE
     Indication: RHEUMATOID ARTHRITIS
     Dosage: 5 MILLIGRAM DAILY; LONG-TERM
     Route: 048
  5. BRALTUS [Concomitant]
     Active Substance: TIOTROPIUM BROMIDE
     Dosage: 10 MICROGRAM DAILY;
  6. ESOMEPRAZOLE. [Concomitant]
     Active Substance: ESOMEPRAZOLE MAGNESIUM
     Dosage: 40 MILLIGRAM DAILY;
  7. BENEPALI [Interacting]
     Active Substance: ETANERCEPT
     Route: 003
     Dates: start: 20181108, end: 20181129
  8. CALCICHEW [Concomitant]
     Active Substance: CALCIUM CARBONATE
     Dosage: WITHHELD DUE TO HIGH CALCIUM LEVELS.

REACTIONS (3)
  - Respiratory tract infection [Recovered/Resolved]
  - Drug interaction [Unknown]
  - Urosepsis [Recovered/Resolved]

NARRATIVE: CASE EVENT DATE: 20181129
